FAERS Safety Report 9738421 (Version 2)
Quarter: 2013Q4

REPORT INFORMATION
  Report Type: Report from Study
  Country: TR (occurrence: TR)
  Receive Date: 20131208
  Receipt Date: 20131208
  Transmission Date: 20140711
  Serious: Yes (Death)
  Sender: FDA-Public Use
  Company Number: TR-ROCHE-1312496

PATIENT
  Age: 44 Year
  Sex: Female
  Weight: 47 kg

DRUGS (1)
  1. XELODA [Suspect]
     Indication: GALLBLADDER CANCER
     Route: 048
     Dates: start: 20131126, end: 20131129

REACTIONS (2)
  - Hypertension [Fatal]
  - Oliguria [Not Recovered/Not Resolved]
